FAERS Safety Report 18080022 (Version 1)
Quarter: 2020Q3

REPORT INFORMATION
  Report Type: Spontaneous
  Country: US (occurrence: US)
  Receive Date: 20200728
  Receipt Date: 20200728
  Transmission Date: 20201103
  Serious: Yes (Other)
  Sender: FDA-Public Use
  Company Number: None

PATIENT
  Age: 39 Year
  Sex: Female
  Weight: 89.1 kg

DRUGS (5)
  1. LYRICA [Concomitant]
     Active Substance: PREGABALIN
  2. ENBREL [Suspect]
     Active Substance: ETANERCEPT
     Indication: RHEUMATOID ARTHRITIS
     Dosage: ?          OTHER FREQUENCY:ONCE WEEKLY;?
     Route: 058
     Dates: start: 20200101, end: 20200520
  3. TIZANIDINE 4MG TABLET [Concomitant]
  4. SYNTHROID [Concomitant]
     Active Substance: LEVOTHYROXINE SODIUM
  5. BIOTIN [Concomitant]
     Active Substance: BIOTIN

REACTIONS (5)
  - Impaired driving ability [None]
  - Cognitive disorder [None]
  - Memory impairment [None]
  - Movement disorder [None]
  - Speech disorder [None]

NARRATIVE: CASE EVENT DATE: 20200407
